FAERS Safety Report 16272223 (Version 4)
Quarter: 2021Q2

REPORT INFORMATION
  Report Type: Spontaneous
  Country: US (occurrence: US)
  Receive Date: 20190503
  Receipt Date: 20210603
  Transmission Date: 20210716
  Serious: No
  Sender: FDA-Public Use
  Company Number: US-PFIZER INC-2019186978

PATIENT
  Age: 64 Year
  Sex: Female
  Weight: 54.43 kg

DRUGS (5)
  1. FLECTOR [Suspect]
     Active Substance: DICLOFENAC EPOLAMINE
     Indication: ARTHRALGIA
     Dosage: 1 DF, 2X/DAY
     Dates: start: 201904
  2. FLECTOR [Suspect]
     Active Substance: DICLOFENAC EPOLAMINE
     Indication: TENDONITIS
     Dosage: 1 DF, 2X/DAY
     Dates: start: 2017, end: 2018
  3. LISINOPRIL. [Concomitant]
     Active Substance: LISINOPRIL
     Dosage: 20 MG, 1X/DAY
     Dates: start: 2018
  4. FLECTOR [Suspect]
     Active Substance: DICLOFENAC EPOLAMINE
     Dosage: UNK UNK, AS NEEDED (AS NEEDED, APPLY 1 TO SKIN TWO TIMES A DAY, EVERY 12 HOURS)
  5. METOPROLOL SUCCINATE. [Concomitant]
     Active Substance: METOPROLOL SUCCINATE
     Dosage: 25 MG, 1X/DAY

REACTIONS (7)
  - Off label use [Unknown]
  - Expired product administered [Unknown]
  - Off label use [Not Recovered/Not Resolved]
  - Drug ineffective [Not Recovered/Not Resolved]
  - Drug ineffective [Unknown]
  - Product use in unapproved indication [Not Recovered/Not Resolved]
  - Wrong technique in product usage process [Not Recovered/Not Resolved]

NARRATIVE: CASE EVENT DATE: 20190423
